FAERS Safety Report 19473242 (Version 2)
Quarter: 2021Q3

REPORT INFORMATION
  Report Type: Spontaneous
  Country: IT (occurrence: IT)
  Receive Date: 20210629
  Receipt Date: 20210703
  Transmission Date: 20211014
  Serious: Yes (Hospitalization, Other)
  Sender: FDA-Public Use
  Company Number: IT-JNJFOC-20210649074

PATIENT
  Age: 76 Year
  Sex: Male
  Weight: 75 kg

DRUGS (9)
  1. IBUPROFEN. [Interacting]
     Active Substance: IBUPROFEN
     Indication: TOOTH INFECTION
  2. IBUPROFEN. [Interacting]
     Active Substance: IBUPROFEN
     Indication: TOOTHACHE
  3. CLAVULANIC ACID [Concomitant]
     Active Substance: CLAVULANIC ACID
     Indication: GINGIVITIS
  4. IBUPROFEN. [Suspect]
     Active Substance: IBUPROFEN
     Indication: GINGIVITIS
     Dosage: HIGH DOSE
     Route: 065
  5. AMOXICILLIN. [Interacting]
     Active Substance: AMOXICILLIN
     Indication: TOOTHACHE
  6. CLAVULANIC ACID [Concomitant]
     Active Substance: CLAVULANIC ACID
     Indication: TOOTHACHE
  7. AMOXICILLIN. [Interacting]
     Active Substance: AMOXICILLIN
     Indication: GINGIVITIS
     Dosage: INCREASED
     Route: 048
  8. CLAVULANIC ACID [Concomitant]
     Active Substance: CLAVULANIC ACID
     Indication: TOOTH INFECTION
     Route: 065
  9. AMOXICILLIN. [Interacting]
     Active Substance: AMOXICILLIN
     Indication: TOOTH INFECTION
     Route: 048

REACTIONS (5)
  - Pleocytosis [Recovered/Resolved]
  - Encephalitis [Recovered/Resolved]
  - Meningitis aseptic [Recovered/Resolved]
  - Drug interaction [Recovered/Resolved]
  - Condition aggravated [Recovered/Resolved]
